FAERS Safety Report 21207006 (Version 1)
Quarter: 2022Q3

REPORT INFORMATION
  Report Type: Report from Study
  Country: NL (occurrence: NL)
  Receive Date: 20220812
  Receipt Date: 20220812
  Transmission Date: 20221027
  Serious: Yes (Other)
  Sender: FDA-Public Use
  Company Number: NL-VER-202200094

PATIENT
  Age: 69 Year
  Sex: Male

DRUGS (4)
  1. TRIPTORELIN PAMOATE [Suspect]
     Active Substance: TRIPTORELIN PAMOATE
     Indication: Product used for unknown indication
     Dosage: 22.5 MG SOLV 2 ML
     Route: 065
     Dates: start: 20210310
  2. OMEPRAZOLE [Concomitant]
     Active Substance: OMEPRAZOLE
     Route: 065
  3. CRESTOR [Concomitant]
     Active Substance: ROSUVASTATIN CALCIUM
     Route: 065
  4. TACAN/D3 [Concomitant]
     Dosage: 500 MG/400 IE (1 D)
     Route: 065

REACTIONS (1)
  - Metastases to bone [Not Recovered/Not Resolved]
